FAERS Safety Report 12051114 (Version 1)
Quarter: 2016Q1

REPORT INFORMATION
  Report Type: Spontaneous
  Country: US (occurrence: None)
  Receive Date: 20160208
  Receipt Date: 20160208
  Transmission Date: 20160526
  Serious: No
  Sender: FDA-Public Use
  Company Number: None

PATIENT
  Age: 33 Year
  Sex: Male
  Weight: 83.46 kg

DRUGS (1)
  1. AMOXICILLIN 875MG RITE AID [Suspect]
     Active Substance: AMOXICILLIN
     Indication: UPPER RESPIRATORY TRACT INFECTION
     Dosage: 1 TABLET BID TWICE DAILY TAKEN BY MOUTH
     Route: 048
     Dates: start: 20160131, end: 20160204

REACTIONS (3)
  - Rash generalised [None]
  - Pruritus generalised [None]
  - Headache [None]

NARRATIVE: CASE EVENT DATE: 20160203
